FAERS Safety Report 9021282 (Version 1)
Quarter: 2013Q1

REPORT INFORMATION
  Report Type: Spontaneous
  Country: US (occurrence: US)
  Receive Date: 20130119
  Receipt Date: 20130119
  Transmission Date: 20140127
  Serious: No
  Sender: FDA-Public Use
  Company Number: US-ALLERGAN-1203194US

PATIENT
  Age: 56 Year
  Sex: Female

DRUGS (2)
  1. BOTOX COSMETIC [Suspect]
     Indication: SKIN WRINKLING
     Dosage: 24 UNITS, SINGLE
     Route: 030
     Dates: start: 20120223, end: 20120223
  2. BOTOX COSMETIC [Suspect]
     Dosage: 2 UNITS, SINGLE
     Route: 030
     Dates: start: 20120216, end: 20120216

REACTIONS (3)
  - Eyelid oedema [Recovering/Resolving]
  - Vision blurred [Recovering/Resolving]
  - Eyelid ptosis [Recovering/Resolving]
